FAERS Safety Report 8913642 (Version 2)
Quarter: 2012Q4

REPORT INFORMATION
  Report Type: 
  Country: US (occurrence: US)
  Receive Date: 20121119
  Receipt Date: 20121217
  Transmission Date: 20130627
  Serious: No
  Sender: FDA-Public Use
  Company Number: US-PFIZER INC-2012286549

PATIENT
  Age: 60 Year
  Sex: Female

DRUGS (7)
  1. DIFLUCAN [Suspect]
     Indication: CANDIDA ESOPHAGITIS
     Dosage: UNK
     Dates: start: 201208
  2. VANCOMYCIN HCL [Suspect]
     Indication: ENTEROBACTER CLOACAE INFECTION
     Dosage: UNK
     Dates: start: 201208
  3. ZOSYN [Suspect]
     Indication: ENTEROBACTER CLOACAE INFECTION
     Dosage: UNK
     Dates: start: 201208
  4. LEVAQUIN [Suspect]
     Indication: ENTEROBACTER CLOACAE INFECTION
     Dosage: UNK
     Dates: start: 201208
  5. NEXAVAR [Concomitant]
     Dosage: UNK
     Dates: start: 201208
  6. SUTENT [Concomitant]
     Dosage: UNK
     Dates: start: 201208
  7. HYDREA [Concomitant]

REACTIONS (1)
  - Drug ineffective [Unknown]
